FAERS Safety Report 23010770 (Version 2)
Quarter: 2023Q4

REPORT INFORMATION
  Report Type: Report from Study
  Country: CA (occurrence: CA)
  Receive Date: 20230929
  Receipt Date: 20231019
  Transmission Date: 20240109
  Serious: Yes (Hospitalization, Other)
  Sender: FDA-Public Use
  Company Number: CA-Vifor (International) Inc.-VIT-2023-07206

PATIENT
  Sex: Female
  Weight: 71.6 kg

DRUGS (1)
  1. VELTASSA [Suspect]
     Active Substance: PATIROMER
     Indication: Hyperkalaemia
     Dosage: SACHET
     Route: 048

REACTIONS (4)
  - Pneumonia aspiration [Unknown]
  - Aspiration [Unknown]
  - Vomiting [Recovered/Resolved]
  - Drug intolerance [Unknown]
